FAERS Safety Report 19867814 (Version 4)
Quarter: 2022Q1

REPORT INFORMATION
  Report Type: Spontaneous
  Country: US (occurrence: US)
  Receive Date: 20210922
  Receipt Date: 20220228
  Transmission Date: 20220424
  Serious: Yes (Other)
  Sender: FDA-Public Use
  Company Number: US-BRISTOL-MYERS SQUIBB COMPANY-BMS-2021-093588

PATIENT
  Age: 7 Year
  Sex: Female
  Weight: 19.5 kg

DRUGS (9)
  1. ORENCIA [Suspect]
     Active Substance: ABATACEPT
     Indication: Juvenile idiopathic arthritis
     Dosage: 50 MG/0.4 ML, QWK
     Route: 058
     Dates: start: 20200115
  2. ORENCIA [Suspect]
     Active Substance: ABATACEPT
     Dosage: 87.5 MG/0.7 ML INJECT 0.7 ML UNDER THE SKIN WEEKLY FOR 30 DAYS
     Route: 058
     Dates: start: 20210827
  3. ORENCIA [Suspect]
     Active Substance: ABATACEPT
     Indication: Juvenile idiopathic arthritis
     Dosage: 87.5 MILLIGRAM, QWK
     Route: 058
     Dates: start: 20191211
  4. ORENCIA [Suspect]
     Active Substance: ABATACEPT
     Indication: Juvenile idiopathic arthritis
     Dosage: 87.5 MILLIGRAM, QWK
     Route: 058
     Dates: start: 20191211
  5. ORENCIA [Suspect]
     Active Substance: ABATACEPT
     Dosage: 87.5 MILLIGRAM, QWK
     Route: 058
     Dates: start: 20200111
  6. ORENCIA [Suspect]
     Active Substance: ABATACEPT
     Dosage: 87.5 MILLIGRAM, QWK
     Route: 058
     Dates: start: 20200111
  7. ORENCIA [Suspect]
     Active Substance: ABATACEPT
     Dosage: 87.5 MILLIGRAM
     Route: 058
     Dates: start: 20210827
  8. ORENCIA [Suspect]
     Active Substance: ABATACEPT
     Dosage: 87.5 MILLIGRAM
     Route: 058
     Dates: start: 20210827
  9. CYPROHEPTADINE [Concomitant]
     Active Substance: CYPROHEPTADINE
     Indication: Product used for unknown indication
     Dosage: 2MG/5ML
     Route: 065

REACTIONS (2)
  - Juvenile idiopathic arthritis [Unknown]
  - Device malfunction [Unknown]
